FAERS Safety Report 9762674 (Version 2)
Quarter: 2013Q4

REPORT INFORMATION
  Report Type: Spontaneous
  Country: FR (occurrence: FR)
  Receive Date: 20131216
  Receipt Date: 20131219
  Transmission Date: 20140711
  Serious: Yes (Death, Hospitalization, Disabling)
  Sender: FDA-Public Use
  Company Number: FR-PFIZER INC-2013354562

PATIENT
  Age: 64 Year
  Sex: Male

DRUGS (18)
  1. SOLU-MEDROL [Suspect]
     Dosage: 80 MG, SINGLE
     Route: 042
     Dates: start: 20131004
  2. CARBOPLATIN [Suspect]
     Dosage: 600 MG, SINGLE
     Route: 042
     Dates: start: 20131004
  3. PACLITAXEL [Suspect]
     Dosage: 300 MG, SINGLE
     Route: 042
     Dates: start: 20131004
  4. KYTRIL [Suspect]
     Dosage: 2 MG, SINGLE
     Route: 048
     Dates: start: 20131004
  5. POLARAMINE [Suspect]
     Dosage: 5 MG, SINGLE
     Route: 058
     Dates: start: 20131004
  6. AZANTAC [Suspect]
     Dosage: 50 MG, SINGLE
     Route: 042
     Dates: start: 20131004
  7. EMEND [Suspect]
     Dosage: 125 MG, 1X/DAY
     Route: 048
     Dates: start: 20131004
  8. EMEND [Suspect]
     Dosage: 80 MG, DAILY
     Dates: end: 20131007
  9. ALDACTONE [Concomitant]
     Dosage: 50 MG, DAILY
     Route: 048
  10. LAROXYL [Concomitant]
     Dosage: 75 MG, DAILY
     Route: 048
  11. XANAX [Concomitant]
     Dosage: 0.25 MG, 3X/DAY
     Route: 048
  12. OGAST [Concomitant]
     Dosage: 30 MG, 1X/DAY
     Route: 048
  13. MIFLONIL [Concomitant]
     Dosage: 400 UNK, UNK
  14. ONBREZ [Concomitant]
     Dosage: 150 UNK, UNK
  15. BRONCHODUAL [Concomitant]
     Dosage: UNK
  16. ZOPHREN [Concomitant]
     Dosage: 2 DF, PER DAY
  17. PRIMPERAN [Concomitant]
     Dosage: UNK, AS NEEDED
  18. SOLUPRED [Concomitant]
     Dosage: 40 MG, DAILY

REACTIONS (2)
  - Ischaemic stroke [Fatal]
  - Hyponatraemia [Unknown]
